FAERS Safety Report 18066359 (Version 3)
Quarter: 2020Q3

REPORT INFORMATION
  Report Type: Spontaneous
  Country: FR (occurrence: FR)
  Receive Date: 20200724
  Receipt Date: 20200730
  Transmission Date: 20201103
  Serious: Yes (Other)
  Sender: FDA-Public Use
  Company Number: FR-PFIZER INC-2020280685

PATIENT
  Age: 53 Year
  Sex: Male

DRUGS (5)
  1. PANTOPRAZOLE [Suspect]
     Active Substance: PANTOPRAZOLE
     Indication: PROPHYLAXIS
     Dosage: 20 MILLIGRAM (20MG 1 JOUR SUR 2)
     Route: 048
     Dates: start: 202005, end: 20200530
  2. ADENURIC [Concomitant]
     Active Substance: FEBUXOSTAT
     Dosage: UNK
     Route: 048
  3. RELPAX [Suspect]
     Active Substance: ELETRIPTAN HYDROBROMIDE
     Indication: MIGRAINE
     Dosage: 40 MILLIGRAM (40MG 1 JOUR/2)
     Route: 048
     Dates: start: 202005, end: 20200529
  4. PROFEMIGR [Suspect]
     Active Substance: KETOPROFEN
     Indication: MIGRAINE
     Dosage: 150 MILLIGRAM (150MG 1 JOUR SUR 2)
     Route: 048
     Dates: start: 202005, end: 20200530
  5. PIASCLEDINE [GLYCINE MAX SEED OIL;PERSEA AMERICANA OIL] [Concomitant]
     Active Substance: AVOCADO OIL\SOYBEAN OIL
     Dosage: UNK
     Route: 048

REACTIONS (1)
  - Hepatitis [Recovering/Resolving]

NARRATIVE: CASE EVENT DATE: 20200530
